FAERS Safety Report 12275268 (Version 2)
Quarter: 2016Q2

REPORT INFORMATION
  Report Type: Spontaneous
  Country: US (occurrence: US)
  Receive Date: 20160415
  Receipt Date: 20160512
  Transmission Date: 20160815
  Serious: No
  Sender: FDA-Public Use
  Company Number: US-UCBSA-2015016415

PATIENT
  Sex: Male

DRUGS (6)
  1. NEUPRO [Suspect]
     Active Substance: ROTIGOTINE
     Dosage: 8 MG  DAILY
  2. NEUPRO [Suspect]
     Active Substance: ROTIGOTINE
     Dosage: 2 MG DAILY
     Dates: start: 201503
  3. NEUPRO [Suspect]
     Active Substance: ROTIGOTINE
     Dosage: 2 MG DAILY
  4. NEUPRO [Suspect]
     Active Substance: ROTIGOTINE
     Dosage: 3 MG  DAILY
  5. NEUPRO [Suspect]
     Active Substance: ROTIGOTINE
     Dosage: 4 MG DAILY
     Dates: start: 201502, end: 2015
  6. NEUPRO [Suspect]
     Active Substance: ROTIGOTINE
     Indication: RESTLESS LEGS SYNDROME
     Dosage: 1 MG, DAILY
     Dates: start: 2014

REACTIONS (4)
  - Application site pain [Recovered/Resolved]
  - Application site rash [Not Recovered/Not Resolved]
  - Application site erythema [Not Recovered/Not Resolved]
  - Vitiligo [Recovered/Resolved]

NARRATIVE: CASE EVENT DATE: 2015
